FAERS Safety Report 9610372 (Version 2)
Quarter: 2013Q4

REPORT INFORMATION
  Report Type: Spontaneous
  Country: US (occurrence: US)
  Receive Date: 20131009
  Receipt Date: 20131009
  Transmission Date: 20140711
  Serious: Yes (Other)
  Sender: FDA-Public Use
  Company Number: US-NAPPMUNDI-USA-2012-0097199

PATIENT
  Sex: Female

DRUGS (2)
  1. BUTRANS [Suspect]
     Indication: PRODUCT USED FOR UNKNOWN INDICATION
     Dosage: 10 MCG, SEE TEXT
     Route: 062
  2. NORCO [Suspect]
     Indication: PAIN
     Route: 048

REACTIONS (5)
  - Drug abuse [Unknown]
  - Inadequate analgesia [Unknown]
  - Extra dose administered [Unknown]
  - Abdominal pain [Recovered/Resolved]
  - Drug administered at inappropriate site [Unknown]
